FAERS Safety Report 7302390-9 (Version None)
Quarter: 2011Q1

REPORT INFORMATION
  Report Type: 
  Country: None (occurrence: None)
  Receive Date: 20110218
  Receipt Date: 20101023
  Transmission Date: 20110831
  Serious: No
  Sender: FDA-Public Use
  Company Number: US-ASTRAZENECA-2010SE45352

PATIENT
  Sex: Female
  Weight: 44.5 kg

DRUGS (8)
  1. NORVASC [Concomitant]
  2. ACCOLATE [Suspect]
     Indication: CHRONIC OBSTRUCTIVE PULMONARY DISEASE
     Route: 048
  3. FLOVENT [Concomitant]
  4. LIPITOR [Concomitant]
  5. ESTROGENIC SUBSTANCE [Concomitant]
  6. THYROID MED [Concomitant]
  7. ASPIRIN [Concomitant]
  8. COMBIVENT [Concomitant]

REACTIONS (1)
  - ARTHRITIS [None]
